FAERS Safety Report 7808838-5 (Version None)
Quarter: 2011Q4

REPORT INFORMATION
  Report Type: 
  Country: None (occurrence: None)
  Receive Date: 20111006
  Receipt Date: 20110925
  Transmission Date: 20120403
  Serious: Yes (Death, Hospitalization)
  Sender: FDA-Public Use
  Company Number: IN-JNJFOC-20110911342

PATIENT
  Age: 35 Year
  Sex: Female

DRUGS (1)
  1. DACOGEN [Suspect]
     Indication: MYELODYSPLASTIC SYNDROME
     Dosage: 20 MG/M2, INTRAVENOUS
     Route: 042
     Dates: start: 20110905, end: 20110909

REACTIONS (4)
  - PYREXIA [None]
  - MALAISE [None]
  - PERIPHERAL COLDNESS [None]
  - DIZZINESS [None]
